FAERS Safety Report 9746169 (Version 2)
Quarter: 2013Q4

REPORT INFORMATION
  Report Type: Spontaneous
  Country: ES (occurrence: ES)
  Receive Date: 20131211
  Receipt Date: 20131211
  Transmission Date: 20140711
  Serious: No
  Sender: FDA-Public Use
  Company Number: ES-GILEAD-2009-0024809

PATIENT
  Sex: Male
  Weight: 68 kg

DRUGS (3)
  1. ATRIPLA [Suspect]
     Indication: HIV INFECTION
  2. TRUVADA [Concomitant]
     Indication: HIV INFECTION
  3. EFAVIRENZ [Concomitant]

REACTIONS (3)
  - Gastrointestinal disorder [Unknown]
  - Weight decreased [Recovered/Resolved]
  - Diarrhoea [Unknown]
